FAERS Safety Report 15330183 (Version 1)
Quarter: 2018Q3

REPORT INFORMATION
  Report Type: Spontaneous
  Country: US (occurrence: US)
  Receive Date: 20180824
  Receipt Date: 20180824
  Transmission Date: 20181010
  Serious: Yes (Hospitalization)
  Sender: FDA-Public Use
  Company Number: None

PATIENT
  Age: 78 Year
  Sex: Female

DRUGS (26)
  1. FLUCONAZOLE. [Concomitant]
     Active Substance: FLUCONAZOLE
  2. METOPROLOL TARTRATE. [Concomitant]
     Active Substance: METOPROLOL TARTRATE
  3. OMEPRAZOLE. [Concomitant]
     Active Substance: OMEPRAZOLE
  4. ENOXAPARIN [Concomitant]
     Active Substance: ENOXAPARIN
  5. PAROXETINE. [Concomitant]
     Active Substance: PAROXETINE
  6. PREDNISONE. [Concomitant]
     Active Substance: PREDNISONE
  7. ROSUVASTATIN. [Concomitant]
     Active Substance: ROSUVASTATIN
  8. HUMIRA [Suspect]
     Active Substance: ADALIMUMAB
     Indication: RHEUMATOID ARTHRITIS
     Route: 058
     Dates: start: 20170314
  9. METFORMIN [Concomitant]
     Active Substance: METFORMIN HYDROCHLORIDE
  10. FOLIC ACID. [Concomitant]
     Active Substance: FOLIC ACID
  11. INSULIN [Concomitant]
     Active Substance: INSULIN NOS
  12. OXYBUTYNIN. [Concomitant]
     Active Substance: OXYBUTYNIN CHLORIDE
  13. OXYCODONE [Concomitant]
     Active Substance: OXYCODONE
  14. ATORVASTATIN [Concomitant]
     Active Substance: ATORVASTATIN
  15. CARAFATE [Concomitant]
     Active Substance: SUCRALFATE
  16. E[INVALID] [Concomitant]
  17. NICOTINE TD [Concomitant]
  18. ENOXAPARIN [Concomitant]
     Active Substance: ENOXAPARIN
  19. GABAPENTIN. [Concomitant]
     Active Substance: GABAPENTIN
  20. LISINOPRIL. [Concomitant]
     Active Substance: LISINOPRIL
  21. METHOTREXATE. [Concomitant]
     Active Substance: METHOTREXATE
  22. PANTOPRAZOLE [Concomitant]
     Active Substance: PANTOPRAZOLE
  23. BUPROPN HCL [Concomitant]
     Active Substance: BUPROPION HYDROCHLORIDE
  24. CLOPIDOGREL [Concomitant]
     Active Substance: CLOPIDOGREL BISULFATE
  25. DONEPEZIL. [Concomitant]
     Active Substance: DONEPEZIL
  26. FEROSUL [Concomitant]

REACTIONS (1)
  - Femur fracture [None]

NARRATIVE: CASE EVENT DATE: 20180723
